FAERS Safety Report 24537915 (Version 1)
Quarter: 2024Q4

REPORT INFORMATION
  Report Type: Spontaneous
  Country: HU (occurrence: HU)
  Receive Date: 20241023
  Receipt Date: 20241023
  Transmission Date: 20250115
  Serious: Yes (Death)
  Sender: SANDOZ
  Company Number: HU-NOVPHSZ-PHHY2019HU114475

PATIENT
  Sex: Male

DRUGS (2)
  1. FULVESTRANT [Suspect]
     Active Substance: FULVESTRANT
     Indication: Breast cancer metastatic
     Dosage: 500 MG, UNK (THE FIRST 3 INJECTION ON EACH 14 DAYS, THEN ON EACH 28 DAYS)
     Route: 030
  2. PALBOCICLIB [Suspect]
     Active Substance: PALBOCICLIB
     Indication: Breast cancer metastatic
     Dosage: 125 MG, QD (125 MG, 1X /DAY, 3/1 DOSING SCHEMA (THROUGH 21 CONSECUTIVE DAYS WHICH WAS FOLLOWED BY 7)
     Route: 048

REACTIONS (3)
  - Neoplasm progression [Fatal]
  - Off label use [Unknown]
  - Product use issue [Unknown]

NARRATIVE: CASE EVENT DATE: 20180101
